FAERS Safety Report 8894797 (Version 2)
Quarter: 2012Q4

REPORT INFORMATION
  Report Type: Report from Study
  Country: IL (occurrence: IL)
  Receive Date: 20121108
  Receipt Date: 20121114
  Transmission Date: 20130627
  Serious: Yes (Hospitalization)
  Sender: FDA-Public Use
  Company Number: IL-CELGENEUS-082-21880-12110600

PATIENT
  Age: 56 Year
  Sex: Female

DRUGS (3)
  1. REVLIMID [Suspect]
     Indication: MULTIPLE MYELOMA
     Route: 048
  2. ELOTUZUMAB [Suspect]
     Indication: MULTIPLE MYELOMA
     Dosage: 510 Milligram
     Route: 041
     Dates: start: 20121028
  3. DEXAMETHASONE [Suspect]
     Indication: MULTIPLE MYELOMA
     Route: 065

REACTIONS (2)
  - Hypercalcaemia [Recovered/Resolved]
  - Spinal compression fracture [Recovered/Resolved]
